FAERS Safety Report 9207701 (Version 8)
Quarter: 2016Q2

REPORT INFORMATION
  Report Type: Spontaneous
  Country: US (occurrence: US)
  Receive Date: 20130403
  Receipt Date: 20160414
  Transmission Date: 20160815
  Serious: Yes (Hospitalization, Other)
  Sender: FDA-Public Use
  Company Number: US-009507513-1304USA001398

PATIENT
  Sex: Male

DRUGS (2)
  1. FINASTERIDE. [Suspect]
     Active Substance: FINASTERIDE
  2. PROPECIA [Suspect]
     Active Substance: FINASTERIDE
     Indication: ANDROGENETIC ALOPECIA
     Dosage: 1 MG, QD
     Route: 048
     Dates: start: 20051011, end: 201111

REACTIONS (26)
  - Orgasm abnormal [Unknown]
  - Fatigue [Unknown]
  - Male genital atrophy [Unknown]
  - Major depression [Unknown]
  - Libido decreased [Unknown]
  - Pulmonary embolism [Unknown]
  - Snoring [Unknown]
  - Skin lesion [Unknown]
  - Ejaculation disorder [Unknown]
  - Urticaria [Unknown]
  - Drug ineffective [Unknown]
  - Cognitive disorder [Not Recovered/Not Resolved]
  - Erectile dysfunction [Unknown]
  - Skin disorder [Unknown]
  - Hepatic steatosis [Unknown]
  - Sexual dysfunction [Unknown]
  - Hypogonadism male [Unknown]
  - Liver function test abnormal [Unknown]
  - Depression [Not Recovered/Not Resolved]
  - Drug ineffective [Unknown]
  - Type V hyperlipidaemia [Unknown]
  - Semen volume decreased [Unknown]
  - Anxiety [Not Recovered/Not Resolved]
  - Deep vein thrombosis [Unknown]
  - Eyelid oedema [Unknown]
  - Amnesia [Not Recovered/Not Resolved]

NARRATIVE: CASE EVENT DATE: 20060326
